FAERS Safety Report 15318884 (Version 1)
Quarter: 2018Q3

REPORT INFORMATION
  Report Type: Spontaneous
  Country: US (occurrence: US)
  Receive Date: 20180826
  Receipt Date: 20180826
  Transmission Date: 20181010
  Serious: No
  Sender: FDA-Public Use
  Company Number: US-009507513-1808USA003101

PATIENT
  Age: 74 Year
  Sex: Female

DRUGS (1)
  1. REMERON [Suspect]
     Active Substance: MIRTAZAPINE
     Route: 048

REACTIONS (4)
  - Vocal cord dysfunction [Unknown]
  - Eye swelling [Unknown]
  - Pruritus [Unknown]
  - Rash [Unknown]
